FAERS Safety Report 8811782 (Version 1)
Quarter: 2012Q4

REPORT INFORMATION
  Report Type: 
  Country: US (occurrence: US)
  Receive Date: 20120927
  Receipt Date: 20120927
  Transmission Date: 20130627
  Serious: Yes (Other)
  Sender: FDA-Public Use
  Company Number: US-PFIZER INC-2012238932

PATIENT
  Sex: Female

DRUGS (2)
  1. PRISTIQ [Suspect]
     Dosage: UNK
     Dates: start: 20110201
  2. GEODON [Suspect]
     Dosage: UNK
     Dates: start: 20110201

REACTIONS (2)
  - Suicidal ideation [Unknown]
  - Hot flush [Unknown]
